FAERS Safety Report 6334664-2 (Version None)
Quarter: 2009Q3

REPORT INFORMATION
  Report Type: 
  Country: None (occurrence: None)
  Receive Date: 20090831
  Receipt Date: 20090824
  Transmission Date: 20100115
  Serious: Yes (Other)
  Sender: FDA-Public Use
  Company Number: US-BAYER-200926376NA

PATIENT
  Age: 35 Year
  Sex: Female
  Weight: 66 kg

DRUGS (1)
  1. MIRENA [Suspect]
     Indication: CONTRACEPTION
     Dosage: CONTINUOUS
     Route: 015
     Dates: start: 20090313, end: 20090707

REACTIONS (5)
  - HYSTERECTOMY [None]
  - IUCD COMPLICATION [None]
  - PRESYNCOPE [None]
  - PROCEDURAL PAIN [None]
  - UTERINE RUPTURE [None]
